FAERS Safety Report 4836643-0 (Version None)
Quarter: 2005Q4

REPORT INFORMATION
  Report Type: 
  Country: None (occurrence: None)
  Receive Date: 20051121
  Receipt Date: 20051014
  Transmission Date: 20060501
  Serious: Yes (Death)
  Sender: FDA-Public Use
  Company Number: DEU-2005-0001764

PATIENT
  Age: 34 Year
  Sex: Male

DRUGS (7)
  1. OXYCODONE HCL [Suspect]
     Indication: PAIN
  2. TRAMADOL HCL [Suspect]
     Indication: PAIN
  3. AMITRIPTYLINE HCL [Suspect]
     Indication: DEPRESSION
  4. ACETAMINOPHEN [Concomitant]
  5. METAXALONE [Concomitant]
  6. CYCLOBENZAPRINE HCL [Concomitant]
  7. IBUPROFEN [Concomitant]

REACTIONS (5)
  - COMPLETED SUICIDE [None]
  - INCORRECT DOSE ADMINISTERED [None]
  - MULTIPLE DRUG OVERDOSE [None]
  - PULMONARY CONGESTION [None]
  - SLEEP DISORDER [None]
